FAERS Safety Report 5789066-4 (Version None)
Quarter: 2008Q2

REPORT INFORMATION
  Report Type: 
  Country: None (occurrence: None)
  Receive Date: 20080626
  Receipt Date: 20080624
  Transmission Date: 20081010
  Serious: Yes (Other)
  Sender: FDA-Public Use
  Company Number: D0057835A

PATIENT
  Sex: Female

DRUGS (1)
  1. ELONTRIL [Suspect]
     Dosage: 150MG PER DAY
     Route: 048

REACTIONS (3)
  - DRUG ABUSE [None]
  - INCORRECT ROUTE OF DRUG ADMINISTRATION [None]
  - INTENTIONAL OVERDOSE [None]
